FAERS Safety Report 5213250-1 (Version None)
Quarter: 2007Q1

REPORT INFORMATION
  Report Type: 
  Country: None (occurrence: None)
  Receive Date: 20070117
  Receipt Date: 20070117
  Transmission Date: 20070707
  Serious: Yes (Hospitalization)
  Sender: FDA-Public Use
  Company Number: None

PATIENT
  Age: 71 Year
  Sex: Male

DRUGS (9)
  1. EPTIFIBATIDE 75MG/100ML [Suspect]
     Indication: PERCUTANEOUS CORONARY INTERVENTION
     Dosage: 75 MG IV DRIP
     Route: 041
     Dates: start: 20061106, end: 20061106
  2. ACETAMINOPHEN [Concomitant]
  3. ADVAIR DISKUS 100/50 [Concomitant]
  4. CITALOPRAM HYDROBROMIDE [Concomitant]
  5. IBUPROFEN [Concomitant]
  6. ISOSORBIDE DINITRATE [Concomitant]
  7. METFORMIN HCL [Concomitant]
  8. METOPROLOL TARTRATE [Concomitant]
  9. OMEPRAZOLE [Concomitant]

REACTIONS (1)
  - THROMBOCYTOPENIA [None]
